FAERS Safety Report 8192089-1 (Version None)
Quarter: 2012Q1

REPORT INFORMATION
  Report Type: 
  Country: None (occurrence: None)
  Receive Date: 20120307
  Receipt Date: 20120302
  Transmission Date: 20120608
  Serious: Yes (Other)
  Sender: FDA-Public Use
  Company Number: US-PFIZER INC-2012056980

PATIENT
  Sex: Female

DRUGS (1)
  1. EFFEXOR XR [Suspect]
     Dosage: 300 MG, 1X/DAY
     Route: 048

REACTIONS (7)
  - DEPENDENCE [None]
  - FEELING DRUNK [None]
  - DIZZINESS [None]
  - HYPERSOMNIA [None]
  - NAUSEA [None]
  - DISORIENTATION [None]
  - MALAISE [None]
